FAERS Safety Report 19999459 (Version 1)
Quarter: 2021Q4

REPORT INFORMATION
  Report Type: Other
  Country: CA (occurrence: CA)
  Receive Date: 20211027
  Receipt Date: 20211027
  Transmission Date: 20220303
  Serious: Yes (Other)
  Sender: FDA-Public Use
  Company Number: CA-CELLTRION INC.-2021CA014504

PATIENT

DRUGS (11)
  1. RITUXIMAB [Suspect]
     Active Substance: RITUXIMAB
     Indication: Product used for unknown indication
     Route: 065
  2. OCRELIZUMAB [Suspect]
     Active Substance: OCRELIZUMAB
     Indication: Primary progressive multiple sclerosis
     Dosage: 600.0 MILLIGRAM, 1 EVERY 6 MONTHS
     Route: 042
  3. OCRELIZUMAB [Suspect]
     Active Substance: OCRELIZUMAB
     Dosage: 300.0 MILLIGRAM, 1 EVERY 2 WEEKS
     Route: 042
  4. CELEBREX [Concomitant]
     Active Substance: CELECOXIB
  5. DALFAMPRIDINE [Concomitant]
     Active Substance: DALFAMPRIDINE
     Indication: Multiple sclerosis
     Dosage: 15.0 MILLIGRAM, 2 EVERY 1 DAY
     Route: 048
  6. DALFAMPRIDINE [Concomitant]
     Active Substance: DALFAMPRIDINE
     Dosage: 10.0 MILLIGRAM, 2 EVERY 1 DAY
     Route: 065
  7. IMOVANE [Concomitant]
     Active Substance: ZOPICLONE
     Dosage: 7.5 MILLIGRAM, 2 EVERY 1 DAY
     Route: 048
  8. MYRBETRIQ [Concomitant]
     Active Substance: MIRABEGRON
     Dosage: 50.0 MILLIGRAM, 1 EVERY 1 DAY
     Route: 065
  9. REACTINE [Concomitant]
  10. TAMSULOSIN [Concomitant]
     Active Substance: TAMSULOSIN
     Dosage: 0.4 MILLIGRAM
     Route: 065
  11. VAGIFEM [Concomitant]
     Active Substance: ESTRADIOL
     Dosage: 10.0 MICROGRAM, 2 EVERY 1 WEEK
     Route: 065

REACTIONS (4)
  - Oesophageal spasm [Recovered/Resolved]
  - Genital herpes [Recovered/Resolved]
  - Pain in extremity [Recovered/Resolved]
  - Paraesthesia [Recovered/Resolved]
